FAERS Safety Report 5824757-8 (Version None)
Quarter: 2008Q3

REPORT INFORMATION
  Report Type: 
  Country: None (occurrence: None)
  Receive Date: 20080722
  Receipt Date: 20080715
  Transmission Date: 20090109
  Serious: Yes (Other)
  Sender: FDA-Public Use
  Company Number: 2008018570

PATIENT
  Sex: Female

DRUGS (1)
  1. FRESHBURST LISTERINE (MENTHOL, METHYL SALICYLATE, EUCALYPTOL, THYMOL) [Suspect]
     Indication: DENTAL DISORDER PROPHYLAXIS
     Dosage: 2 TEASPOONS ONE TIME AT NOON, ORAL
     Route: 048
     Dates: start: 20080715, end: 20080715

REACTIONS (5)
  - DIZZINESS [None]
  - FEELING ABNORMAL [None]
  - GLOSSODYNIA [None]
  - ORAL PAIN [None]
  - THERMAL BURN [None]
